FAERS Safety Report 4603200-0 (Version None)
Quarter: 2005Q1

REPORT INFORMATION
  Report Type: 
  Country: None (occurrence: None)
  Receive Date: 20050307
  Receipt Date: 20050217
  Transmission Date: 20050727
  Serious: Yes (Other)
  Sender: FDA-Public Use
  Company Number: PHHO2005JP03027

PATIENT
  Age: 62 Year
  Sex: Female

DRUGS (3)
  1. VISUDYNE [Suspect]
     Indication: MACULAR DEGENERATION
     Dosage: 4.38 ML DAILY IV
     Route: 042
     Dates: start: 20041117, end: 20041117
  2. JUVELA [Concomitant]
  3. NIFLAN [Concomitant]

REACTIONS (2)
  - DYSGEUSIA [None]
  - PAROSMIA [None]
